FAERS Safety Report 10014602 (Version 5)
Quarter: 2016Q3

REPORT INFORMATION
  Report Type: Spontaneous
  Country: JP (occurrence: JP)
  Receive Date: 20140317
  Receipt Date: 20160721
  Transmission Date: 20161108
  Serious: Yes (Life-Threatening, Hospitalization, Other)
  Sender: FDA-Public Use
  Company Number: JP-ELI_LILLY_AND_COMPANY-JP201402008765

PATIENT
  Age: 63 Year
  Sex: Female
  Weight: 47.9 kg

DRUGS (3)
  1. ZYPREXA [Suspect]
     Active Substance: OLANZAPINE
     Indication: SCHIZOPHRENIA
     Dosage: 5 MG, QD
     Route: 048
     Dates: start: 20130709, end: 20140221
  2. DEPAKENE [Concomitant]
     Active Substance: VALPROIC ACID
     Indication: SCHIZOPHRENIA
     Dosage: 400 MG, QD
     Route: 048
     Dates: start: 20130611, end: 20140222
  3. ROHYPNOL [Concomitant]
     Active Substance: FLUNITRAZEPAM
     Indication: SCHIZOPHRENIA
     Dosage: 2 MG, QD
     Route: 048
     Dates: start: 20130625, end: 20140220

REACTIONS (7)
  - Hypothermia [Recovered/Resolved]
  - Neuroleptic malignant syndrome [Recovered/Resolved]
  - Pancreatitis acute [Recovered/Resolved]
  - Pneumonia aspiration [Recovered/Resolved]
  - Chills [Unknown]
  - Decreased appetite [Unknown]
  - Blood potassium decreased [Unknown]

NARRATIVE: CASE EVENT DATE: 20140219
